FAERS Safety Report 13931080 (Version 2)
Quarter: 2017Q3

REPORT INFORMATION
  Report Type: Spontaneous
  Country: US (occurrence: US)
  Receive Date: 20170902
  Receipt Date: 20170911
  Transmission Date: 20171127
  Serious: Yes (Other)
  Sender: FDA-Public Use
  Company Number: US-AMGEN-USASP2017130467

PATIENT
  Sex: Female
  Weight: 86.18 kg

DRUGS (5)
  1. ENBREL [Suspect]
     Active Substance: ETANERCEPT
     Dosage: UNK UNK, Q2WK
     Route: 065
     Dates: end: 201707
  2. PREDNISONE. [Suspect]
     Active Substance: PREDNISONE
     Indication: RHEUMATOID ARTHRITIS
     Dosage: 15 MG, QD, (10MG ONE TABLET AND A HALF ONCE A DAY)
     Route: 048
     Dates: start: 201707, end: 2017
  3. METHOTREXATE. [Suspect]
     Active Substance: METHOTREXATE
     Indication: RHEUMATOID ARTHRITIS
     Dosage: UNK
     Route: 065
  4. ENBREL [Suspect]
     Active Substance: ETANERCEPT
     Indication: RHEUMATOID ARTHRITIS
     Dosage: UNK UNK, QWK
     Route: 065
     Dates: start: 2016
  5. PREDNISONE. [Suspect]
     Active Substance: PREDNISONE
     Indication: JOINT SWELLING

REACTIONS (9)
  - Intestinal fistula [Unknown]
  - Intentional product misuse [Unknown]
  - Pain [Not Recovered/Not Resolved]
  - Joint crepitation [Recovering/Resolving]
  - Weight increased [Recovering/Resolving]
  - Joint swelling [Recovering/Resolving]
  - Gastrointestinal disorder [Unknown]
  - Drug ineffective [Unknown]
  - Lactose intolerance [Unknown]

NARRATIVE: CASE EVENT DATE: 2017
